FAERS Safety Report 5834067-0 (Version None)
Quarter: 2008Q3

REPORT INFORMATION
  Report Type: 
  Country: None (occurrence: None)
  Receive Date: 20080805
  Receipt Date: 20080729
  Transmission Date: 20090109
  Serious: Yes (Hospitalization, Disabling)
  Sender: FDA-Public Use
  Company Number: DE-ASTRAZENECA-2008PK01695

PATIENT
  Age: 53 Year
  Sex: Female

DRUGS (1)
  1. NAROPIN [Suspect]
     Indication: POSTOPERATIVE ANALGESIA
     Dosage: 20 MG/H FOR TWO DAYS
     Route: 008

REACTIONS (3)
  - ANAESTHETIC COMPLICATION NEUROLOGICAL [None]
  - NEUROTOXICITY [None]
  - PARAPLEGIA [None]
